FAERS Safety Report 18707456 (Version 3)
Quarter: 2021Q2

REPORT INFORMATION
  Report Type: Other
  Country: CA (occurrence: CA)
  Receive Date: 20210106
  Receipt Date: 20210614
  Transmission Date: 20210717
  Serious: Yes (Hospitalization, Other)
  Sender: FDA-Public Use
  Company Number: CA-VALIDUS PHARMACEUTICALS LLC-CA-2020VAL001118

PATIENT

DRUGS (15)
  1. LASIX [Suspect]
     Active Substance: FUROSEMIDE
     Indication: PULMONARY OEDEMA
     Dosage: UNK
     Route: 065
  2. METOLAZONE. [Suspect]
     Active Substance: METOLAZONE
     Indication: FLUID OVERLOAD
  3. RITUXIMABUM [Suspect]
     Active Substance: RITUXIMAB
     Indication: GRANULOMATOSIS WITH POLYANGIITIS
     Dosage: UNK
     Route: 041
  4. CHOLECALCIFEROL [Concomitant]
     Active Substance: CHOLECALCIFEROL
     Indication: PRODUCT USED FOR UNKNOWN INDICATION
     Dosage: UNK
     Dates: start: 2019
  5. METOLAZONE. [Suspect]
     Active Substance: METOLAZONE
     Indication: PULMONARY OEDEMA
     Dosage: UNK
     Route: 065
  6. PREDNISONE. [Concomitant]
     Active Substance: PREDNISONE
     Indication: PRODUCT USED FOR UNKNOWN INDICATION
     Dosage: UNK
     Dates: end: 202003
  7. LASIX [Suspect]
     Active Substance: FUROSEMIDE
     Indication: FLUID OVERLOAD
     Dosage: UNK
     Route: 065
     Dates: start: 202002, end: 202002
  8. SEPTRA [Concomitant]
     Active Substance: SULFAMETHOXAZOLE\TRIMETHOPRIM
     Indication: PRODUCT USED FOR UNKNOWN INDICATION
     Dosage: UNK
  9. SENNA                              /02118001/ [Concomitant]
     Active Substance: HERBALS\SENNOSIDES
     Indication: PRODUCT USED FOR UNKNOWN INDICATION
     Dosage: UNK
     Dates: start: 2020
  10. METHYLPREDNISOLONE. [Concomitant]
     Active Substance: METHYLPREDNISOLONE
     Indication: PRODUCT USED FOR UNKNOWN INDICATION
     Dosage: UNK
     Dates: start: 2019
  11. METOPROLOL. [Concomitant]
     Active Substance: METOPROLOL
     Indication: PRODUCT USED FOR UNKNOWN INDICATION
     Dosage: UNK
     Dates: start: 2019
  12. RITUXIMABUM [Suspect]
     Active Substance: RITUXIMAB
     Dosage: FRIST DOSE NOT TROUGH RPAP IN THE HOSPITAL
     Route: 065
     Dates: start: 20200131
  13. HEPARIN [Concomitant]
     Active Substance: HEPARIN SODIUM
     Indication: PRODUCT USED FOR UNKNOWN INDICATION
     Dosage: UNK
  14. INSULIN [Concomitant]
     Active Substance: INSULIN NOS
     Indication: PRODUCT USED FOR UNKNOWN INDICATION
     Dosage: UNK
  15. POLYETHYLENE GLYCOL 3350. [Concomitant]
     Active Substance: POLYETHYLENE GLYCOL 3350
     Indication: PRODUCT USED FOR UNKNOWN INDICATION
     Dosage: UNK

REACTIONS (22)
  - Oxygen saturation decreased [Recovered/Resolved]
  - Pallor [Unknown]
  - Alveolar lung disease [Unknown]
  - Delirium [Recovered/Resolved]
  - Hypoxia [Unknown]
  - Pulmonary alveolar haemorrhage [Recovered/Resolved]
  - Asthenia [Unknown]
  - Blood creatinine increased [Recovered/Resolved]
  - Tachypnoea [Recovered/Resolved]
  - Respiratory disorder [Recovered/Resolved]
  - Aspergillus infection [Unknown]
  - Atrial fibrillation [Recovered/Resolved]
  - Respiratory failure [Unknown]
  - Urinary tract infection [Unknown]
  - Pulmonary oedema [Recovered/Resolved]
  - Weight decreased [Unknown]
  - Wheezing [Unknown]
  - Hyponatraemia [Recovered/Resolved]
  - Haemoptysis [Recovered/Resolved]
  - Dyspnoea [Unknown]
  - Fluid overload [Recovered/Resolved]
  - Chest discomfort [Unknown]

NARRATIVE: CASE EVENT DATE: 20200131
